FAERS Safety Report 5823203-8 (Version None)
Quarter: 2008Q3

REPORT INFORMATION
  Report Type: 
  Country: None (occurrence: None)
  Receive Date: 20080725
  Receipt Date: 20080718
  Transmission Date: 20090109
  Serious: Yes (Other)
  Sender: FDA-Public Use
  Company Number: US-JNJFOC-20080705307

PATIENT
  Sex: Female
  Weight: 57.15 kg

DRUGS (4)
  1. LEVAQUIN [Suspect]
     Indication: SINUSITIS
     Route: 048
  2. ZETIA [Concomitant]
     Indication: BLOOD CHOLESTEROL
  3. IBUPROFEN TABLETS [Concomitant]
     Indication: PAIN IN EXTREMITY
     Dosage: IT WAS PRESCRIBED FOR 3 DAYS, TO BE TAKEN AS NECESSARY
     Route: 048
  4. LUNESTA [Concomitant]

REACTIONS (3)
  - JOINT SWELLING [None]
  - JOINT WARMTH [None]
  - MOVEMENT DISORDER [None]
